FAERS Safety Report 12058917 (Version 1)
Quarter: 2016Q1

REPORT INFORMATION
  Report Type: Spontaneous
  Country: US (occurrence: US)
  Receive Date: 20160210
  Receipt Date: 20160210
  Transmission Date: 20160526
  Serious: No
  Sender: FDA-Public Use
  Company Number: US-APOTEX-2015AP015387

PATIENT
  Age: 60 Year
  Sex: Female

DRUGS (16)
  1. FLUVOXAMINE MALEATE. [Interacting]
     Active Substance: FLUVOXAMINE MALEATE
     Dosage: 200 MG, UNK
     Route: 048
     Dates: start: 20140625
  2. LITHIUM CARBONATE. [Interacting]
     Active Substance: LITHIUM CARBONATE
     Indication: PRODUCT USED FOR UNKNOWN INDICATION
     Dosage: 450 MG, PO BID
     Route: 048
  3. BUPROPION HYDROCHLORIDE. [Interacting]
     Active Substance: BUPROPION HYDROCHLORIDE
     Dosage: 100 MG PO PM
     Route: 048
  4. FLUVOXAMINE MALEATE. [Interacting]
     Active Substance: FLUVOXAMINE MALEATE
     Indication: DEPRESSION
     Dosage: 50 MG, Q.H.S.
     Route: 048
  5. FLUVOXAMINE MALEATE. [Interacting]
     Active Substance: FLUVOXAMINE MALEATE
     Dosage: 100 MG, Q.H.S.
     Route: 048
     Dates: start: 20140602
  6. QUETIAPINE FUMARATE. [Interacting]
     Active Substance: QUETIAPINE FUMARATE
     Dosage: 200 MG, UNK
     Route: 048
     Dates: start: 20140812
  7. FLUVOXAMINE MALEATE. [Interacting]
     Active Substance: FLUVOXAMINE MALEATE
     Dosage: 250 MG,
     Dates: start: 20140813
  8. FLUVOXAMINE MALEATE. [Interacting]
     Active Substance: FLUVOXAMINE MALEATE
     Dosage: 50 MG, UNK
     Dates: start: 20140818
  9. FLUVOXAMINE MALEATE. [Interacting]
     Active Substance: FLUVOXAMINE MALEATE
     Dosage: 150 MG, UNK
     Route: 048
     Dates: start: 20140624
  10. FLUVOXAMINE MALEATE. [Interacting]
     Active Substance: FLUVOXAMINE MALEATE
     Dosage: 100 MG, UNK
     Dates: start: 20140815
  11. FLUVOXAMINE MALEATE. [Interacting]
     Active Substance: FLUVOXAMINE MALEATE
     Dosage: 250 MG, UNK
     Route: 048
     Dates: start: 20140630
  12. FLUVOXAMINE MALEATE. [Interacting]
     Active Substance: FLUVOXAMINE MALEATE
     Dosage: 300 MG, UNK
     Route: 048
     Dates: start: 20140701, end: 20140819
  13. FLUVOXAMINE MALEATE. [Interacting]
     Active Substance: FLUVOXAMINE MALEATE
     Dosage: 200 MG, DAILY DOSE
     Dates: start: 20140814
  14. BUPROPION HYDROCHLORIDE. [Suspect]
     Active Substance: BUPROPION HYDROCHLORIDE
     Indication: PRODUCT USED FOR UNKNOWN INDICATION
     Dosage: 200 MG PO AM
     Route: 048
  15. QUETIAPINE FUMARATE. [Interacting]
     Active Substance: QUETIAPINE FUMARATE
     Indication: PRODUCT USED FOR UNKNOWN INDICATION
     Dosage: 100 MG PO Q.H.S.
     Route: 048
  16. LEVOTHYROXINE SODIUM. [Concomitant]
     Active Substance: LEVOTHYROXINE SODIUM
     Indication: PRODUCT USED FOR UNKNOWN INDICATION
     Dosage: 50 ?G, PO QD
     Route: 048

REACTIONS (2)
  - Oscillopsia [Recovered/Resolved]
  - Drug interaction [Recovered/Resolved]

NARRATIVE: CASE EVENT DATE: 201409
